FAERS Safety Report 14635428 (Version 2)
Quarter: 2018Q2

REPORT INFORMATION
  Report Type: Spontaneous
  Country: US (occurrence: US)
  Receive Date: 20180314
  Receipt Date: 20180510
  Transmission Date: 20180711
  Serious: Yes (Other)
  Sender: FDA-Public Use
  Company Number: US-TEVA-2018-US-869809

PATIENT
  Age: 53 Year
  Sex: Female
  Weight: 62.65 kg

DRUGS (1)
  1. NALTREXONE HYDROCHLORIDE TABLET 50MG [Suspect]
     Active Substance: NALTREXONE HYDROCHLORIDE
     Route: 065

REACTIONS (2)
  - Suicidal ideation [Recovered/Resolved]
  - Depression [Recovered/Resolved]

NARRATIVE: CASE EVENT DATE: 201801
